FAERS Safety Report 7309487-8 (Version None)
Quarter: 2011Q1

REPORT INFORMATION
  Report Type: 
  Country: None (occurrence: None)
  Receive Date: 20110223
  Receipt Date: 20110214
  Transmission Date: 20110831
  Serious: Yes (Hospitalization, Other)
  Sender: FDA-Public Use
  Company Number: US-ASTRAZENECA-2010SE14026

PATIENT
  Age: 53 Year
  Sex: Male

DRUGS (25)
  1. NEXIUM [Suspect]
     Route: 048
  2. XANAX [Concomitant]
     Route: 048
  3. COLACE [Concomitant]
  4. LYRICA [Concomitant]
     Indication: NEUROPATHY PERIPHERAL
     Route: 048
  5. QVAR 40 [Concomitant]
     Dosage: 40 MCG, 2 PUFFS TWICE DAILY
  6. ASPIRIN [Concomitant]
     Route: 048
  7. FLONASE [Concomitant]
     Dosage: 4 SPRAYS DAILY
  8. MULTIPLE VITAMIN [Concomitant]
     Route: 048
  9. OXYCODONE [Concomitant]
     Route: 048
  10. DURAGESIC-50 [Concomitant]
     Dosage: 75 MCG/HR PATCH 72 HR, 1 PATCH EVERY 3 DAYS
  11. NITROGLYCERIN [Concomitant]
     Route: 060
  12. ATROVENT [Concomitant]
     Dosage: 1 PUFF EVERY 8 HOURS PRN
  13. CELEXA [Concomitant]
     Route: 048
  14. ENALAPRIL MALEATE AND HYDROCHLOROTHIAZIDE [Concomitant]
     Dosage: 5-12.5 MG DAILY
     Route: 048
  15. FISH OIL [Concomitant]
     Route: 048
  16. LIDODERM [Concomitant]
     Dosage: 5 % (700 MG/PATCH) ADHESIVE PATCH, MEDICATED, ON 12 HOURS OFF 12 HOUR
  17. TRAZODONE HCL [Concomitant]
     Route: 048
  18. OMEPRAZOLE [Concomitant]
     Route: 048
  19. XANAX [Concomitant]
     Route: 048
  20. NASONEX [Concomitant]
     Indication: HYPERSENSITIVITY
     Dosage: 2 PRAYS TWICE DAILY
  21. MUCINEX [Concomitant]
  22. MORPHINE [Concomitant]
     Route: 048
  23. AMBIEN [Concomitant]
  24. METFORMIN [Concomitant]
     Route: 048
  25. PAXIL [Concomitant]
     Route: 048

REACTIONS (9)
  - LEUKOCYTOSIS [None]
  - PYREXIA [None]
  - VOMITING [None]
  - SYNCOPE [None]
  - CARDIAC ASSISTANCE DEVICE USER [None]
  - ULCER [None]
  - BACTERIAL INFECTION [None]
  - BRADYCARDIA [None]
  - MYOCARDIAL INFARCTION [None]
